FAERS Safety Report 6544724-9 (Version None)
Quarter: 2010Q1

REPORT INFORMATION
  Report Type: 
  Country: None (occurrence: None)
  Receive Date: 20100121
  Receipt Date: 20100111
  Transmission Date: 20100710
  Serious: Yes (Hospitalization, Other)
  Sender: FDA-Public Use
  Company Number: FR-JNJFOC-20091007625

PATIENT
  Sex: Male
  Weight: 45 kg

DRUGS (4)
  1. PREZISTA [Suspect]
     Indication: HIV INFECTION
     Route: 048
  2. BACTRIM [Suspect]
     Indication: INFECTION PROPHYLAXIS
     Route: 048
     Dates: start: 20090820, end: 20091015
  3. RITONAVIR [Concomitant]
     Indication: HIV INFECTION
     Route: 048
  4. TRUVADA [Concomitant]
     Indication: HIV INFECTION
     Route: 048

REACTIONS (8)
  - CHOLESTASIS [None]
  - CYTOLYTIC HEPATITIS [None]
  - DRUG TOXICITY [None]
  - HEPATITIS [None]
  - HEPATITIS B [None]
  - HERPES ZOSTER [None]
  - IMMUNE RECONSTITUTION SYNDROME [None]
  - LYMPHOCYTOSIS [None]
